FAERS Safety Report 10099518 (Version 2)
Quarter: 2014Q2

REPORT INFORMATION
  Report Type: Spontaneous
  Country: BR (occurrence: BR)
  Receive Date: 20140423
  Receipt Date: 20140602
  Transmission Date: 20141212
  Serious: No
  Sender: FDA-Public Use
  Company Number: BR-BRISTOL-MYERS SQUIBB COMPANY-20666905

PATIENT
  Sex: Female

DRUGS (5)
  1. GLIFAGE XR [Suspect]
     Indication: GLUCOSE TOLERANCE IMPAIRED
     Dosage: AFTER LUNCH.?ONGOING?GLIFAGE XR 500MG.
     Dates: start: 2012
  2. BUPROPION [Concomitant]
  3. DEPAKOTE ER [Concomitant]
     Dosage: AT NIGHT
  4. LORAZEPAM [Concomitant]
     Dosage: AT NIGHT
  5. OLANZAPINE [Concomitant]
     Dosage: AT NIGHT

REACTIONS (2)
  - Diarrhoea [Unknown]
  - Medication residue present [Unknown]
